FAERS Safety Report 18159490 (Version 1)
Quarter: 2020Q3

REPORT INFORMATION
  Report Type: Spontaneous
  Country: CN (occurrence: CN)
  Receive Date: 20200817
  Receipt Date: 20200817
  Transmission Date: 20201103
  Serious: Yes (Disabling, Other)
  Sender: FDA-Public Use
  Company Number: CN-JNJFOC-20200815396

PATIENT
  Age: 18 Year
  Sex: Female
  Weight: 50 kg

DRUGS (5)
  1. CARBAMAZEPINE. [Concomitant]
     Active Substance: CARBAMAZEPINE
     Dates: start: 20200807
  2. CARBAMAZEPINE. [Concomitant]
     Active Substance: CARBAMAZEPINE
     Dates: start: 20200808
  3. TOPAMAX [Suspect]
     Active Substance: TOPIRAMATE
     Dosage: 1 TABLET EACH IN THE MORNING AND EVENING
     Route: 048
  4. TOPAMAX [Suspect]
     Active Substance: TOPIRAMATE
     Indication: EPILEPSY
     Dosage: 1 TABLET EACH IN THE MORNING AND EVENING
     Route: 048
     Dates: start: 2009
  5. TOPAMAX [Suspect]
     Active Substance: TOPIRAMATE
     Dosage: 1 TABLET EACH IN THE EVENING
     Route: 048

REACTIONS (10)
  - Retinal detachment [Unknown]
  - Intentional product use issue [Unknown]
  - Headache [Unknown]
  - Blindness [Unknown]
  - Seizure [Unknown]
  - Joint swelling [Unknown]
  - Pyrexia [Unknown]
  - Insomnia [Unknown]
  - Cataract [Unknown]
  - Muscle atrophy [Unknown]

NARRATIVE: CASE EVENT DATE: 2015
